FAERS Safety Report 18490240 (Version 1)
Quarter: 2020Q4

REPORT INFORMATION
  Report Type: Spontaneous
  Country: US (occurrence: US)
  Receive Date: 20201111
  Receipt Date: 20201111
  Transmission Date: 20210114
  Serious: No
  Sender: FDA-Public Use
  Company Number: US-MYLANLABS-2020M1092620

PATIENT
  Sex: Female
  Weight: 66 kg

DRUGS (1)
  1. PROCTOFOAM HC [Suspect]
     Active Substance: HYDROCORTISONE ACETATE\PRAMOXINE HYDROCHLORIDE
     Indication: ANAL INFLAMMATION
     Dosage: 1 PERCENT
     Route: 054

REACTIONS (2)
  - Wrong technique in product usage process [Unknown]
  - Product leakage [Not Recovered/Not Resolved]
